FAERS Safety Report 16177642 (Version 2)
Quarter: 2019Q2

REPORT INFORMATION
  Report Type: Spontaneous
  Country: FR (occurrence: FR)
  Receive Date: 20190410
  Receipt Date: 20190417
  Transmission Date: 20190711
  Serious: Yes (Hospitalization)
  Sender: FDA-Public Use
  Company Number: FR-TEVA-2019-FR-1036249

PATIENT
  Age: 61 Year
  Sex: Male
  Weight: 75 kg

DRUGS (3)
  1. OXALIPLATINE TEVA 200 MG/40 MG [Suspect]
     Active Substance: OXALIPLATIN
     Indication: COLORECTAL CANCER METASTATIC
     Dosage: 28-MAR-2019, DAY ONE OF SECOND COURSE OF TOMOX (RALTITREXED AND OXALIPLATIN) PROTOCOL.
     Route: 042
  2. RALTITREXED [Concomitant]
     Active Substance: RALTITREXED
     Indication: COLORECTAL CANCER METASTATIC
     Dosage: 28-MAR-2019, DAY ONE OF SECOND COURSE OF TOMOX (RALTITREXED AND OXALIPLATIN) PROTOCOL.
  3. OXALIPLATINE TEVA 100 MG [Suspect]
     Active Substance: OXALIPLATIN
     Indication: COLORECTAL CANCER METASTATIC

REACTIONS (5)
  - Throat irritation [Recovered/Resolved]
  - Cough [Recovered/Resolved]
  - Hypersensitivity [Recovered/Resolved]
  - Pruritus generalised [Recovered/Resolved]
  - Diarrhoea [Recovered/Resolved]

NARRATIVE: CASE EVENT DATE: 20190328
